FAERS Safety Report 9951222 (Version 1)
Quarter: 2014Q1

REPORT INFORMATION
  Report Type: Report from Study
  Country: US (occurrence: US)
  Receive Date: 20140304
  Receipt Date: 20140304
  Transmission Date: 20141002
  Serious: No
  Sender: FDA-Public Use
  Company Number: US-ABBVIE-13P-163-1067073-00

PATIENT
  Age: 64 Year
  Sex: Female

DRUGS (16)
  1. HUMIRA [Suspect]
     Indication: CROHN^S DISEASE
     Dates: start: 20121120
  2. LISINOPRIL [Concomitant]
     Indication: CARDIOVASCULAR EVENT PROPHYLAXIS
     Dosage: 25MG DAILY
  3. SPIRONOLACTONE [Concomitant]
     Indication: CARDIOVASCULAR EVENT PROPHYLAXIS
     Dosage: 25MG DAILY
  4. CARVEDILOL [Concomitant]
     Indication: CARDIOVASCULAR EVENT PROPHYLAXIS
  5. TRIAMTERENE [Concomitant]
     Indication: CARDIOVASCULAR EVENT PROPHYLAXIS
     Dosage: 37.5/25MG
  6. ENTOCORT [Concomitant]
     Indication: CROHN^S DISEASE
     Dosage: IN AM
  7. ZANTAC [Concomitant]
     Indication: GASTROOESOPHAGEAL REFLUX DISEASE
  8. MERCAPTOPURINE [Concomitant]
     Indication: CROHN^S DISEASE
     Dosage: DAILY
  9. TRAMADOL [Concomitant]
     Indication: ARTHRITIS
  10. FLAGYL [Concomitant]
     Indication: GASTRITIS
  11. IMODIUM [Concomitant]
     Indication: DIARRHOEA
  12. IMODIUM [Concomitant]
     Indication: CROHN^S DISEASE
  13. MULTIPLE EYE DROPS [Concomitant]
     Indication: INTRAOCULAR PRESSURE TEST ABNORMAL
  14. EYE LUBRICATION [Concomitant]
     Indication: INTRAOCULAR PRESSURE TEST ABNORMAL
  15. TYLENOL [Concomitant]
     Indication: ARTHRITIS
     Dosage: AS NEEDED EVERY 4-6 HOURS
  16. MULTIVITAMIN [Concomitant]
     Indication: PRODUCT USED FOR UNKNOWN INDICATION

REACTIONS (1)
  - Contusion [Recovering/Resolving]
